FAERS Safety Report 16226079 (Version 1)
Quarter: 2019Q2

REPORT INFORMATION
  Report Type: Spontaneous
  Country: US (occurrence: US)
  Receive Date: 20190423
  Receipt Date: 20190423
  Transmission Date: 20190711
  Serious: Yes (Other)
  Sender: FDA-Public Use
  Company Number: US-NAPPMUNDI-USA-2019-0145609

PATIENT
  Sex: Male

DRUGS (1)
  1. OXYCODONE HYDROCHLORIDE (SIMILAR TO NDA 22-272) [Suspect]
     Active Substance: OXYCODONE HYDROCHLORIDE
     Indication: DRUG ABUSE
     Dosage: (5-10 X 30 MG) 150-300 MG, DAILY

REACTIONS (7)
  - Drug dependence [Recovering/Resolving]
  - Drug withdrawal syndrome [Unknown]
  - Hyperhidrosis [Unknown]
  - Feeling cold [Unknown]
  - Anxiety [Unknown]
  - Drug abuse [Recovering/Resolving]
  - Unevaluable event [Unknown]
